FAERS Safety Report 14603476 (Version 1)
Quarter: 2018Q1

REPORT INFORMATION
  Report Type: Spontaneous
  Country: US (occurrence: US)
  Receive Date: 20180305
  Receipt Date: 20180305
  Transmission Date: 20180509
  Serious: No
  Sender: FDA-Public Use
  Company Number: None

PATIENT
  Sex: Female

DRUGS (1)
  1. SOMAVERT [Suspect]
     Active Substance: PEGVISOMANT
     Indication: HYPERTENSION
     Route: 058
     Dates: start: 201712

REACTIONS (3)
  - Diarrhoea [None]
  - Chest pain [None]
  - Gastrooesophageal reflux disease [None]
